FAERS Safety Report 7409808-1 (Version None)
Quarter: 2011Q2

REPORT INFORMATION
  Report Type: 
  Country: None (occurrence: None)
  Receive Date: 20110405
  Receipt Date: 20110321
  Transmission Date: 20111010
  Serious: Yes (Other)
  Sender: FDA-Public Use
  Company Number: 2011AM004098

PATIENT
  Age: 31 Year
  Sex: Female
  Weight: 156.491 kg

DRUGS (5)
  1. LANTUS [Concomitant]
  2. NOVOLOG [Concomitant]
  3. KEPPRA [Concomitant]
  4. METFORMIN [Concomitant]
  5. SYMLIN [Suspect]
     Indication: TYPE 2 DIABETES MELLITUS
     Dosage: 120 MCG;TID;SC ; 60 MCG;TID;SC
     Route: 058
     Dates: start: 20110311

REACTIONS (1)
  - COMPLEX PARTIAL SEIZURES [None]
